FAERS Safety Report 6115222-1 (Version None)
Quarter: 2009Q1

REPORT INFORMATION
  Report Type: 
  Country: None (occurrence: None)
  Receive Date: 20090313
  Receipt Date: 20090313
  Transmission Date: 20090719
  Serious: Yes (Hospitalization, Other)
  Sender: FDA-Public Use
  Company Number: US-PFIZER INC-2009161542

PATIENT
  Sex: Male

DRUGS (6)
  1. CELEBREX [Suspect]
     Indication: ARTHRITIS
     Dosage: 200 MG, 2X/DAY
     Dates: start: 20030101
  2. ATENOLOL [Concomitant]
  3. QUINAPRIL HYDROCHLORIDE [Concomitant]
  4. AMLODIPINE BESILATE [Concomitant]
  5. ALLOPURINOL [Concomitant]
  6. SIMVASTATIN [Concomitant]

REACTIONS (4)
  - HIP SURGERY [None]
  - IMMUNE SYSTEM DISORDER [None]
  - LICHEN PLANUS [None]
  - ORAL DISORDER [None]
